FAERS Safety Report 4625684-4 (Version None)
Quarter: 2005Q2

REPORT INFORMATION
  Report Type: 
  Country: None (occurrence: None)
  Receive Date: 20050404
  Receipt Date: 20050323
  Transmission Date: 20051028
  Serious: Yes (Other)
  Sender: FDA-Public Use
  Company Number: US-JNJFOC-20050202236

PATIENT
  Sex: Female
  Weight: 67.13 kg

DRUGS (5)
  1. REMICADE [Suspect]
     Indication: CROHN'S DISEASE
     Route: 042
  2. 6MP [Concomitant]
     Route: 049
  3. PREDNISONE [Concomitant]
     Route: 049
  4. NEXIUM [Concomitant]
     Route: 049
  5. CELEBREX [Concomitant]
     Route: 049

REACTIONS (4)
  - ABORTION SPONTANEOUS [None]
  - CONDITION AGGRAVATED [None]
  - CROHN'S DISEASE [None]
  - DRUG EXPOSURE DURING PREGNANCY [None]
